FAERS Safety Report 8451084-5 (Version None)
Quarter: 2012Q2

REPORT INFORMATION
  Report Type: 
  Country: None (occurrence: None)
  Receive Date: 20120613
  Receipt Date: 20120530
  Transmission Date: 20120825
  Serious: Yes (Other)
  Sender: FDA-Public Use
  Company Number: GB-1192539

PATIENT
  Age: 85 Year
  Sex: Female

DRUGS (7)
  1. AZOPT [Suspect]
     Indication: ANGLE CLOSURE GLAUCOMA
     Dosage: TID OPHTHALMIC
     Route: 047
  2. PRED FORTE [Suspect]
     Indication: ANGLE CLOSURE GLAUCOMA
     Dosage: (QID)
  3. ACETAZOLAMIDE [Suspect]
     Indication: ANGLE CLOSURE GLAUCOMA
     Dosage: (500 MG INTRAVENOUS (NOT OTHERWISE SPECIFIED)), (250 MG QID), (125 MG QID)
     Route: 042
  4. METOCLOPRAMIDE [Concomitant]
  5. VOLTAREN [Concomitant]
  6. ISOPTO CARPINE [Suspect]
     Indication: ANGLE CLOSURE GLAUCOMA
     Dosage: OPHTHALMIC
     Route: 047
  7. IOPIDINE [Suspect]
     Indication: EYE DISORDER
     Dosage: TID OPHTHALMIC
     Route: 047

REACTIONS (2)
  - INTRAOCULAR PRESSURE INCREASED [None]
  - PARADOXICAL DRUG REACTION [None]
